FAERS Safety Report 14034086 (Version 1)
Quarter: 2017Q4

REPORT INFORMATION
  Report Type: Spontaneous
  Country: SE (occurrence: SE)
  Receive Date: 20171003
  Receipt Date: 20171003
  Transmission Date: 20180321
  Serious: Yes (Death)
  Sender: FDA-Public Use
  Company Number: SE-CHIESI FARMACEUTICI S.P.A.-SE-CHSI-17-00038

PATIENT
  Age: 83 Year
  Sex: Male
  Weight: 58 kg

DRUGS (6)
  1. KENGREXAL [Suspect]
     Active Substance: CANGRELOR
     Indication: PERCUTANEOUS CORONARY INTERVENTION
     Route: 040
  2. FRAGMIN [Concomitant]
     Active Substance: DALTEPARIN SODIUM
     Indication: ATRIAL FIBRILLATION
     Route: 065
  3. ACETYLSALICYLIC ACID [Concomitant]
     Active Substance: ASPIRIN
     Indication: CARDIAC ARREST
     Route: 065
     Dates: start: 20170514, end: 20170514
  4. KENGREXAL [Suspect]
     Active Substance: CANGRELOR
     Dosage: 72 ML/H
     Route: 041
  5. HEPARIN [Concomitant]
     Active Substance: HEPARIN SODIUM
     Indication: CARDIAC ARREST
     Route: 065
     Dates: start: 20170514, end: 20170514
  6. HEPARIN [Concomitant]
     Active Substance: HEPARIN SODIUM
     Route: 065

REACTIONS (4)
  - Chest pain [Fatal]
  - Thrombosis [Fatal]
  - Cardiac arrest [Fatal]
  - Cardiogenic shock [Fatal]

NARRATIVE: CASE EVENT DATE: 20170514
